FAERS Safety Report 11132188 (Version 3)
Quarter: 2015Q2

REPORT INFORMATION
  Report Type: Spontaneous
  Country: JP (occurrence: JP)
  Receive Date: 20150522
  Receipt Date: 20150605
  Transmission Date: 20150821
  Serious: Yes (Death, Other)
  Sender: FDA-Public Use
  Company Number: JP-PFIZER INC-2015174542

PATIENT
  Age: 63 Year
  Sex: Male

DRUGS (3)
  1. RHEUMATREX [Concomitant]
     Active Substance: METHOTREXATE SODIUM
     Dosage: UNK
  2. CELECOX [Suspect]
     Active Substance: CELECOXIB
     Dosage: STRENGTH 100MG
     Route: 048
     Dates: start: 201301, end: 201307
  3. RIMATIL [Concomitant]
     Active Substance: BUCILLAMINE
     Dosage: UNK

REACTIONS (3)
  - Aplastic anaemia [Fatal]
  - Infection [Fatal]
  - Multi-organ failure [Fatal]
